FAERS Safety Report 17573154 (Version 3)
Quarter: 2020Q2

REPORT INFORMATION
  Report Type: Report from Study
  Country: US (occurrence: US)
  Receive Date: 20200323
  Receipt Date: 20200526
  Transmission Date: 20200713
  Serious: Yes (Hospitalization)
  Sender: FDA-Public Use
  Company Number: US-ACTELION-A-NJ2019-191141

PATIENT
  Sex: Female
  Weight: 119.27 kg

DRUGS (4)
  1. DILTIAZEM. [Concomitant]
     Active Substance: DILTIAZEM
  2. SILDENAFIL CITRATE. [Concomitant]
     Active Substance: SILDENAFIL CITRATE
  3. OPSUMIT [Suspect]
     Active Substance: MACITENTAN
     Indication: NODULE
  4. OPSUMIT [Suspect]
     Active Substance: MACITENTAN
     Indication: PULMONARY ARTERIAL HYPERTENSION
     Dosage: 10 MG, QD
     Route: 048
     Dates: start: 20190320

REACTIONS (13)
  - Pulmonary mass [Unknown]
  - Nodule [Unknown]
  - Respiratory failure [Unknown]
  - Dyspnoea [Unknown]
  - Dyskinesia [Unknown]
  - Fluid retention [Not Recovered/Not Resolved]
  - Concomitant disease aggravated [Not Recovered/Not Resolved]
  - Pain [Unknown]
  - Joint swelling [Not Recovered/Not Resolved]
  - Muscle tightness [Unknown]
  - Influenza [Unknown]
  - Hospitalisation [Unknown]
  - Pruritus [Unknown]

NARRATIVE: CASE EVENT DATE: 2019
